FAERS Safety Report 8224223-9 (Version None)
Quarter: 2012Q1

REPORT INFORMATION
  Report Type: 
  Country: None (occurrence: None)
  Receive Date: 20120307
  Receipt Date: 20110520
  Transmission Date: 20120608
  Serious: No
  Sender: FDA-Public Use
  Company Number: PHHY2011US45026

PATIENT
  Age: 73 Year
  Sex: Female
  Weight: 56.7 kg

DRUGS (15)
  1. NORCO [Concomitant]
  2. MOBIC [Concomitant]
  3. SINGULAIR [Concomitant]
  4. SIMVASTATIN [Concomitant]
  5. LIDODERM [Concomitant]
  6. HYOSCYAMINE (HYOSCYAMINE) [Concomitant]
  7. AFINITOR [Suspect]
     Dosage: 10 MG, ORAL
     Route: 048
  8. TRAZODONE HCL [Concomitant]
  9. OMEPRAZOLE [Concomitant]
  10. ACTOS (PIOGLITAZONE, PIOGLITAZONE HYDROCHLORIDE) [Concomitant]
  11. EXFORGE [Concomitant]
  12. ENALAPRIL MALEATE [Concomitant]
  13. LEVOTHYROXINE SODIUM [Concomitant]
  14. PAXIIL (PAROXETINE HYDROCHLORIDE) [Concomitant]
  15. FENTANYL [Concomitant]

REACTIONS (3)
  - ORAL PAIN [None]
  - FATIGUE [None]
  - DIZZINESS [None]
